FAERS Safety Report 14630071 (Version 5)
Quarter: 2019Q4

REPORT INFORMATION
  Report Type: Spontaneous
  Country: US (occurrence: US)
  Receive Date: 20180313
  Receipt Date: 20191202
  Transmission Date: 20200122
  Serious: No
  Sender: FDA-Public Use
  Company Number: US-PFIZER INC-2018087297

PATIENT
  Age: 65 Year
  Sex: Female
  Weight: 78 kg

DRUGS (11)
  1. XELJANZ XR [Suspect]
     Active Substance: TOFACITINIB CITRATE
     Indication: RHEUMATOID ARTHRITIS
     Dosage: 11 MG, DAILY
     Dates: start: 201601
  2. PREDNISONE. [Concomitant]
     Active Substance: PREDNISONE
     Dosage: 10 MG 1-2 TABS QD PRN [ONCE A DAY] [AS NEEDED]
  3. TRAMADOL. [Concomitant]
     Active Substance: TRAMADOL
     Indication: PAIN
     Dosage: 200MG OR 300MG, DAILY
  4. XELJANZ XR [Suspect]
     Active Substance: TOFACITINIB CITRATE
     Dosage: 11 MG, DAILY
     Route: 048
     Dates: start: 20180128
  5. VOLTAREN [Concomitant]
     Active Substance: DICLOFENAC SODIUM
     Dosage: 1 TOPICAL TO SKIN
     Route: 061
  6. TRAMADOL. [Concomitant]
     Active Substance: TRAMADOL
     Dosage: [1-2 TABS], 3X/DAY
  7. CURAMIN [Concomitant]
     Active Substance: HERBALS
     Dosage: 1 TAB, 3X/DAY
  8. XELJANZ XR [Suspect]
     Active Substance: TOFACITINIB CITRATE
     Dosage: 11 MG, 1X/DAY
     Dates: start: 20180128, end: 20190927
  9. LEFLUNOMIDE. [Concomitant]
     Active Substance: LEFLUNOMIDE
     Dosage: 20 MG, DAILY
     Route: 048
  10. MELOXICAM. [Concomitant]
     Active Substance: MELOXICAM
     Indication: RHEUMATOID ARTHRITIS
     Dosage: 15 MG, DAILY
     Route: 048
  11. HUMIRA [Concomitant]
     Active Substance: ADALIMUMAB
     Indication: RHEUMATOID ARTHRITIS
     Dosage: WEEKLY
     Route: 058
     Dates: end: 20180121

REACTIONS (9)
  - Nasopharyngitis [Unknown]
  - Drug ineffective [Unknown]
  - Weight increased [Unknown]
  - Sinusitis [Unknown]
  - Musculoskeletal discomfort [Unknown]
  - Arthralgia [Unknown]
  - Pain [Recovered/Resolved]
  - Condition aggravated [Recovering/Resolving]
  - Productive cough [Recovered/Resolved]

NARRATIVE: CASE EVENT DATE: 201802
